FAERS Safety Report 6498002-7 (Version None)
Quarter: 2009Q4

REPORT INFORMATION
  Report Type: 
  Country: None (occurrence: None)
  Receive Date: 20091125
  Receipt Date: 20090112
  Transmission Date: 20100525
  Serious: Yes (Hospitalization)
  Sender: FDA-Public Use
  Company Number: 2009BH000709

PATIENT
  Age: 64 Year
  Sex: Male

DRUGS (12)
  1. DIANEAL [Suspect]
     Indication: PERITONEAL DIALYSIS
     Dosage: 14 L ; EVERY DAY ; IP
     Route: 033
     Dates: start: 20061129
  2. EXTRANEAL [Suspect]
     Indication: PERITONEAL DIALYSIS
     Dosage: 2 L ; EVERY DAY ; IP
     Route: 033
     Dates: start: 20061129
  3. METOPROLOL TARTRATE [Concomitant]
  4. LIPITOR [Concomitant]
  5. NORVASC [Concomitant]
  6. NEPHRO-VITE [Concomitant]
  7. LASIX [Concomitant]
  8. DIOVAN [Concomitant]
  9. CALCIUM [Concomitant]
  10. TUMS [Concomitant]
  11. INSULIN [Concomitant]
  12. EPOGEN [Concomitant]

REACTIONS (2)
  - HYPOPHAGIA [None]
  - HYPOTENSION [None]
